FAERS Safety Report 13118626 (Version 1)
Quarter: 2017Q1

REPORT INFORMATION
  Report Type: Other
  Country: US (occurrence: US)
  Receive Date: 20170116
  Receipt Date: 20170116
  Transmission Date: 20170428
  Serious: Yes (Death)
  Sender: FDA-Public Use
  Company Number: US-LEHIGH_VALLEY-USA-POI0580201700060

PATIENT
  Age: 70 Year
  Sex: Female

DRUGS (5)
  1. LIGHTER FLUID NOS [Suspect]
     Active Substance: UNSPECIFIED INGREDIENT
     Dates: end: 2015
  2. HYDROXYZINE [Suspect]
     Active Substance: HYDROXYZINE HYDROCHLORIDE
     Dates: end: 2015
  3. HYPOCHLORITE [Suspect]
     Active Substance: HYPOCHLORITE ION
     Dates: end: 2015
  4. LEVOLET (LEVOTHYROXINE) [Suspect]
     Active Substance: LEVOTHYROXINE
     Dates: end: 2015
  5. ACETAMINOPHEN. [Suspect]
     Active Substance: ACETAMINOPHEN
     Dates: end: 2015

REACTIONS (1)
  - Completed suicide [Fatal]

NARRATIVE: CASE EVENT DATE: 2015
